FAERS Safety Report 8770699 (Version 6)
Quarter: 2014Q2

REPORT INFORMATION
  Report Type: Spontaneous
  Country: US (occurrence: US)
  Receive Date: 20120906
  Receipt Date: 20140612
  Transmission Date: 20141212
  Serious: Yes (Hospitalization, Other)
  Sender: FDA-Public Use
  Company Number: US-UCBSA-064207

PATIENT
  Age: 49 Year
  Sex: Female

DRUGS (19)
  1. XYREM [Suspect]
     Indication: CATAPLEXY
     Dosage: 2.5 G, 2X/DAY (BID)
     Route: 048
     Dates: start: 20120725, end: 20120813
  2. XYREM [Suspect]
     Indication: NARCOLEPSY
     Dosage: NIGHTLY
     Route: 048
     Dates: start: 20120814, end: 20120814
  3. XYREM [Suspect]
     Dosage: TWICE NIGHTLY
     Route: 048
     Dates: start: 20120815, end: 201208
  4. XYREM [Suspect]
     Dosage: TWICE NIGHTLY
     Route: 048
     Dates: start: 20120823, end: 20120829
  5. XYREM [Suspect]
     Dosage: 2.25 G, 2X/DAY (BID), TWICE NIGHTLY
     Route: 048
     Dates: start: 20120915, end: 2012
  6. XYREM [Suspect]
     Dosage: 4.5 G, 2X/DAY (BID), TWICE NIGHTLY
     Route: 048
     Dates: start: 201304, end: 2013
  7. METHYLPHENIDATE HCL [Suspect]
     Dosage: 10 MG, 3X/DAY (TID)
     Route: 048
  8. HYDROCODONE-ACETAMINOPHEN [Suspect]
     Dosage: UNK UNK, 3X/DAY (TID)
  9. BACLOFEN [Suspect]
     Dosage: 10 MG, 3X/DAY (TID)
  10. MELOXICAM [Suspect]
     Dosage: 15 MG, ONCE DAILY (QD)
  11. CLONAZEPAM [Suspect]
     Dosage: .5 MG, 2X/DAY (BID)
  12. GABAPENTIN [Suspect]
     Dosage: 300 MG, 3X/DAY (TID)
  13. VITAMIN D3 [Suspect]
     Dosage: 1000 IU, ONCE DAILY (QD)
  14. ABILIFY [Suspect]
     Indication: BIPOLAR DISORDER
     Dosage: 30 MG, ONCE DAILY (QD)
     Dates: end: 201207
  15. ABILIFY [Suspect]
     Dosage: 30 MG, ONCE DAILY (QD)
     Dates: start: 201208
  16. PRISTIQ [Suspect]
     Indication: BIPOLAR DISORDER
     Dosage: 100 MG, ONCE DAILY (QD)
  17. PRISTIQ [Suspect]
     Dosage: 100 MG, EV 3 DAYS
     Dates: end: 20120802
  18. PRISTIQ [Suspect]
     Dosage: 100 MG, ONCE DAILY (QD)
     Dates: start: 201208
  19. SIMVASTATIN [Suspect]
     Dosage: 40 MG, ONCE DAILY (QD)

REACTIONS (17)
  - Cholelithiasis [Recovered/Resolved]
  - Bile duct obstruction [Recovered/Resolved]
  - Bilirubinuria [Recovered/Resolved]
  - Hepatic enzyme increased [Recovering/Resolving]
  - Suicidal ideation [Recovered/Resolved]
  - Depression [Recovered/Resolved]
  - Aerophagia [Unknown]
  - Eructation [Unknown]
  - Dysphagia [Unknown]
  - Panic attack [Recovered/Resolved]
  - Insomnia [Recovered/Resolved]
  - Nervousness [Recovered/Resolved]
  - Stress [Unknown]
  - Decreased appetite [Unknown]
  - Hyperhidrosis [Recovered/Resolved]
  - Fatigue [Recovered/Resolved]
  - Malaise [Unknown]
